FAERS Safety Report 5712319-2 (Version None)
Quarter: 2008Q2

REPORT INFORMATION
  Report Type: 
  Country: None (occurrence: None)
  Receive Date: 20080421
  Receipt Date: 20080421
  Transmission Date: 20081010
  Serious: Yes (Hospitalization)
  Sender: FDA-Public Use
  Company Number: None

PATIENT
  Age: 68 Year
  Sex: Female
  Weight: 113.3993 kg

DRUGS (1)
  1. BYETTA [Suspect]
     Indication: DIABETES MELLITUS
     Dosage: 1 INJECTION TWO TIMES A DAY
     Dates: start: 20071010, end: 20071209

REACTIONS (5)
  - BREAST PAIN [None]
  - ELECTRIC SHOCK [None]
  - PANCREATIC ENZYMES INCREASED [None]
  - PANCREATITIS [None]
  - SCREAMING [None]
